FAERS Safety Report 10332296 (Version 2)
Quarter: 2014Q3

REPORT INFORMATION
  Report Type: Spontaneous
  Country: ZA (occurrence: ZA)
  Receive Date: 20140722
  Receipt Date: 20140728
  Transmission Date: 20150326
  Serious: Yes (Hospitalization)
  Sender: FDA-Public Use
  Company Number: ZA-BIOMARINAP-ZA-2014-103727

PATIENT
  Age: 5 Year
  Sex: Female

DRUGS (3)
  1. ALDURAZYME [Suspect]
     Active Substance: LARONIDASE
     Indication: MUCOPOLYSACCHARIDOSIS I
     Dosage: UNK UNK, QOW
     Route: 042
     Dates: start: 20131129
  2. WARFARIN [Concomitant]
     Active Substance: WARFARIN
     Indication: PRODUCT USED FOR UNKNOWN INDICATION
     Dosage: UNK
  3. ALDURAZYME [Suspect]
     Active Substance: LARONIDASE
     Dosage: 2.9 MG, QOW
     Route: 042

REACTIONS (10)
  - Influenza like illness [Recovering/Resolving]
  - Listless [Recovering/Resolving]
  - Coordination abnormal [Recovering/Resolving]
  - Limb discomfort [Recovering/Resolving]
  - Staphylococcal infection [Recovering/Resolving]
  - Tendonitis [Recovering/Resolving]
  - Sepsis [Recovering/Resolving]
  - Pyrexia [Recovering/Resolving]
  - Weight bearing difficulty [Recovering/Resolving]
  - Malaise [Recovering/Resolving]

NARRATIVE: CASE EVENT DATE: 20140704
